FAERS Safety Report 6753946-3 (Version None)
Quarter: 2010Q2

REPORT INFORMATION
  Report Type: 
  Country: None (occurrence: None)
  Receive Date: 20100603
  Receipt Date: 20100525
  Transmission Date: 20101027
  Serious: Yes (Hospitalization)
  Sender: FDA-Public Use
  Company Number: A0852917A

PATIENT
  Age: 65 Year
  Sex: Male

DRUGS (16)
  1. TRIZIVIR [Suspect]
     Indication: HIV INFECTION
     Route: 048
     Dates: start: 19880101
  2. TOPROL-XL [Concomitant]
  3. ZOCOR [Concomitant]
  4. PLAVIX [Concomitant]
  5. NIASPAN [Concomitant]
  6. METOPROLOL SUCCINATE [Concomitant]
  7. TRICOR [Concomitant]
  8. AMLODIPINE [Concomitant]
  9. DIOVAN [Concomitant]
  10. FOLIC ACID [Concomitant]
  11. VITAMIN D [Concomitant]
  12. CALCIUM CARBONATE [Concomitant]
  13. VITAMIN D2 [Concomitant]
  14. XOPENEX [Concomitant]
  15. VALIUM [Concomitant]
  16. RESTORIL [Concomitant]

REACTIONS (8)
  - BLOOD GLUCOSE INCREASED [None]
  - DIABETES MELLITUS [None]
  - DYSPNOEA [None]
  - HOSPITALISATION [None]
  - LABORATORY TEST INTERFERENCE [None]
  - LIPIDS INCREASED [None]
  - MYOCARDIAL INFARCTION [None]
  - PAIN [None]
